FAERS Safety Report 5162389-8 (Version None)
Quarter: 2006Q4

REPORT INFORMATION
  Report Type: 
  Country: None (occurrence: None)
  Receive Date: 20061129
  Receipt Date: 20061129
  Transmission Date: 20070319
  Serious: Yes (Life-Threatening, Hospitalization)
  Sender: FDA-Public Use
  Company Number: None

PATIENT
  Age: 76 Year
  Sex: Male

DRUGS (8)
  1. LOVASTATIN [Suspect]
     Dosage: 20 MG DAILY PO
     Route: 048
  2. DIFLUCAN [Suspect]
     Dosage: 100 MG DAILY PO
     Route: 048
  3. ALBUTEROL [Concomitant]
  4. ATROVENT [Concomitant]
  5. PREDNISONE TAB [Concomitant]
  6. PLENDIL [Concomitant]
  7. ADVAIR DISKUS 100/50 [Concomitant]
  8. REMERON [Concomitant]

REACTIONS (2)
  - RHABDOMYOLYSIS [None]
  - VENTRICULAR TACHYCARDIA [None]
